FAERS Safety Report 6447274-3 (Version None)
Quarter: 2009Q4

REPORT INFORMATION
  Report Type: 
  Country: None (occurrence: None)
  Receive Date: 20091119
  Receipt Date: 20091111
  Transmission Date: 20100525
  Serious: Yes (Death)
  Sender: FDA-Public Use
  Company Number: RU-AMGEN-UK316747

PATIENT
  Sex: Male
  Weight: 55 kg

DRUGS (6)
  1. PANITUMUMAB [Suspect]
     Indication: SQUAMOUS CELL CARCINOMA
     Route: 042
     Dates: start: 20080730, end: 20081010
  2. ALCOHOL [Suspect]
     Route: 065
     Dates: end: 20081026
  3. MAGNE-B6 [Concomitant]
     Route: 048
  4. MAGNESIUM SULFATE [Concomitant]
     Route: 042
  5. CISPLATIN [Concomitant]
     Dates: start: 20080730, end: 20081010
  6. FLUOROURACIL [Concomitant]
     Dates: start: 20080803, end: 20081014

REACTIONS (1)
  - DEATH [None]
